FAERS Safety Report 17566112 (Version 1)
Quarter: 2020Q1

REPORT INFORMATION
  Report Type: Spontaneous
  Country: DE (occurrence: DE)
  Receive Date: 20200320
  Receipt Date: 20200320
  Transmission Date: 20200409
  Serious: Yes (Other)
  Sender: FDA-Public Use
  Company Number: DE-PFIZER INC-2020116450

PATIENT
  Sex: Female

DRUGS (1)
  1. CYTOTEC [Suspect]
     Active Substance: MISOPROSTOL
     Indication: LABOUR INDUCTION
     Dosage: UNK
     Route: 064
     Dates: start: 201811

REACTIONS (5)
  - Birth trauma [Recovered/Resolved]
  - Nerve injury [Recovered/Resolved]
  - Paresis [Recovered/Resolved]
  - Foetal exposure during delivery [Unknown]
  - Injury to brachial plexus due to birth trauma [Recovered/Resolved]

NARRATIVE: CASE EVENT DATE: 201811
